FAERS Safety Report 15489140 (Version 1)
Quarter: 2018Q4

REPORT INFORMATION
  Report Type: Spontaneous
  Country: US (occurrence: US)
  Receive Date: 20181011
  Receipt Date: 20181011
  Transmission Date: 20190205
  Serious: No
  Sender: FDA-Public Use
  Company Number: US-PERRIGO-17US031173

PATIENT
  Age: 71 Year
  Sex: Male
  Weight: 163.26 kg

DRUGS (3)
  1. NICOTINE POLACRILEX [Suspect]
     Active Substance: NICOTINE
     Indication: SMOKING CESSATION THERAPY
     Dosage: 4 MG, PRN, UP TO 24 TIMES DAILY
     Route: 002
     Dates: start: 2013
  2. DRUGS FOR OBSTRUCTIVE AIRWAY DISEASES [Concomitant]
     Indication: DYSPNOEA
  3. DRUGS FOR OBSTRUCTIVE AIRWAY DISEASES [Concomitant]
     Indication: CHRONIC OBSTRUCTIVE PULMONARY DISEASE
     Dosage: UNK
     Route: 055

REACTIONS (1)
  - Dyspnoea [Unknown]

NARRATIVE: CASE EVENT DATE: 201710
